FAERS Safety Report 13927986 (Version 1)
Quarter: 2017Q3

REPORT INFORMATION
  Report Type: Spontaneous
  Country: US (occurrence: None)
  Receive Date: 20170831
  Receipt Date: 20170831
  Transmission Date: 20171127
  Serious: Yes (Other)
  Sender: FDA-Public Use
  Company Number: None

PATIENT
  Age: 83 Year
  Sex: Female

DRUGS (12)
  1. NORCO [Concomitant]
     Active Substance: ACETAMINOPHEN\HYDROCODONE BITARTRATE
  2. VITAMIN D [Concomitant]
     Active Substance: CHOLECALCIFEROL
  3. CALCIUM [Concomitant]
     Active Substance: CALCIUM
  4. BUMEX [Concomitant]
     Active Substance: BUMETANIDE
  5. PANTOPRAZOLE [Concomitant]
     Active Substance: PANTOPRAZOLE
  6. TYLENOL [Concomitant]
     Active Substance: ACETAMINOPHEN
  7. MULTIVITAMIN [Concomitant]
     Active Substance: VITAMINS
  8. EXEMESTANE 25MG GREENSTONE [Suspect]
     Active Substance: EXEMESTANE
     Indication: BREAST CANCER FEMALE
     Route: 048
     Dates: start: 20161221
  9. BYSTOLIC [Concomitant]
     Active Substance: NEBIVOLOL HYDROCHLORIDE
  10. DOXAZOSIN [Concomitant]
     Active Substance: DOXAZOSIN\DOXAZOSIN MESYLATE
  11. FLECAINIDE [Concomitant]
     Active Substance: FLECAINIDE
  12. SYNTHROID [Concomitant]
     Active Substance: LEVOTHYROXINE SODIUM

REACTIONS (2)
  - Renal failure [None]
  - Therapy cessation [None]

NARRATIVE: CASE EVENT DATE: 20170829
